FAERS Safety Report 9781430 (Version 1)
Quarter: 2013Q4

REPORT INFORMATION
  Report Type: Report from Study
  Country: BR (occurrence: BR)
  Receive Date: 20131224
  Receipt Date: 20131224
  Transmission Date: 20140711
  Serious: Yes (Hospitalization, Other)
  Sender: FDA-Public Use
  Company Number: PHHY2013BR149863

PATIENT
  Sex: Female
  Weight: 70 kg

DRUGS (8)
  1. ATENOLOL [Suspect]
     Indication: HYPERTENSION
     Dosage: 2 DF, BID
     Route: 048
     Dates: end: 201306
  2. SELOZOK [Concomitant]
     Dosage: 50 MG, UNK
  3. AAS [Concomitant]
     Dosage: 100 MG, UNK
  4. CLOPIDOGREL [Concomitant]
     Dosage: 75 MG, UNK
  5. RANITIDINE [Concomitant]
     Dosage: 150 MG, UNK
  6. SIMVASTATIN [Concomitant]
     Dosage: 40 MG, UNK
  7. MONOCORDIL [Concomitant]
  8. HYDROCHLOROTHIAZIDE [Concomitant]
     Dosage: 25 MG, UNK

REACTIONS (4)
  - Infarction [Unknown]
  - Arteriosclerosis coronary artery [Unknown]
  - Chest pain [Unknown]
  - Blood pressure fluctuation [Unknown]
